FAERS Safety Report 11150102 (Version 3)
Quarter: 2015Q2

REPORT INFORMATION
  Report Type: Spontaneous
  Country: TR (occurrence: TR)
  Receive Date: 20150529
  Receipt Date: 20150611
  Transmission Date: 20150821
  Serious: Yes (Hospitalization, Other)
  Sender: FDA-Public Use
  Company Number: TR-ALLERGAN-1509530US

PATIENT
  Age: 30 Year
  Sex: Male

DRUGS (1)
  1. BOTOX LIYOFILIZE TOZ ICEREN FLAKON [Suspect]
     Active Substance: BOTULINUM TOXIN TYPE A
     Indication: HYPERTONIC BLADDER
     Dosage: 100 UNITS, SINGLE
     Route: 030

REACTIONS (11)
  - Ecchymosis [Unknown]
  - Cellulitis [Unknown]
  - Escherichia infection [Unknown]
  - Skin haemorrhage [Unknown]
  - Procedural pain [Unknown]
  - Necrotising fasciitis [Recovered/Resolved]
  - Pubic pain [Unknown]
  - Bladder pain [Recovered/Resolved]
  - Abdominal distension [Unknown]
  - Petechiae [Unknown]
  - Pyrexia [Unknown]
